FAERS Safety Report 19181926 (Version 1)
Quarter: 2021Q2

REPORT INFORMATION
  Report Type: Spontaneous
  Country: AU (occurrence: AU)
  Receive Date: 20210427
  Receipt Date: 20210427
  Transmission Date: 20210717
  Serious: Yes (Hospitalization)
  Sender: FDA-Public Use
  Company Number: AU-SUN PHARMACEUTICAL INDUSTRIES LTD-2021RR-293204

PATIENT
  Age: 1 Year
  Sex: Male
  Weight: 10 kg

DRUGS (5)
  1. MORPHINE [Suspect]
     Active Substance: MORPHINE
     Indication: PAIN
     Dosage: 10 MICROGRAM/KG/H
     Route: 042
  2. IBUPROFEN. [Suspect]
     Active Substance: IBUPROFEN
     Indication: PAIN
     Dosage: UNK
     Route: 048
  3. PARACETAMOL [Suspect]
     Active Substance: ACETAMINOPHEN
     Indication: PAIN
     Dosage: UNK
     Route: 048
  4. TRAMADOL. [Suspect]
     Active Substance: TRAMADOL
     Indication: PAIN
     Dosage: 2 MILLIGRAM/KILOGRAM (20 MG DOSE)
     Route: 042
  5. MORPHINE [Suspect]
     Active Substance: MORPHINE
     Dosage: 20 MICROGRAM/KG/H
     Route: 042

REACTIONS (5)
  - Acidosis [Unknown]
  - Drug ineffective [Unknown]
  - Sedation complication [Unknown]
  - Aspiration [Unknown]
  - Condition aggravated [Unknown]
